FAERS Safety Report 9454807 (Version 3)
Quarter: 2013Q3

REPORT INFORMATION
  Report Type: Report from Study
  Country: JP (occurrence: JP)
  Receive Date: 20130812
  Receipt Date: 20130823
  Transmission Date: 20140515
  Serious: Yes (Death, Life-Threatening, Hospitalization, Other)
  Sender: FDA-Public Use
  Company Number: PHHY2013JP071943

PATIENT
  Age: 84 Year
  Sex: Female
  Weight: 31 kg

DRUGS (14)
  1. EXELON PATCH [Suspect]
     Indication: DEMENTIA ALZHEIMER^S TYPE
     Dosage: 4.5 MG DAILY
     Route: 062
     Dates: start: 20130312, end: 20130410
  2. EXELON PATCH [Suspect]
     Dosage: 9 MG DAILY
     Route: 062
     Dates: start: 20130411, end: 20130508
  3. EXELON PATCH [Suspect]
     Dosage: 13.5 MG DAILY
     Route: 062
     Dates: start: 20130509, end: 20130605
  4. THEODUR [Concomitant]
     Indication: BRONCHITIS CHRONIC
     Dosage: 200 MG
     Route: 048
     Dates: end: 20130429
  5. MYSLEE [Concomitant]
     Indication: INSOMNIA
     Dosage: 5 MG
     Route: 048
     Dates: end: 20130429
  6. AMEZININ [Concomitant]
     Indication: ORTHOSTATIC HYPOTENSION
     Dosage: 20 MG
     Route: 048
     Dates: end: 20130429
  7. TAKEPRON [Concomitant]
     Indication: GASTRITIS
     Dosage: 15 MG
     Route: 048
     Dates: end: 20130429
  8. BFLUID [Concomitant]
     Indication: EATING DISORDER
     Dosage: 500 ML
     Route: 042
  9. NEUPRO [Concomitant]
     Indication: PARKINSON^S DISEASE
     Dosage: 4.5 MG
     Dates: start: 20130424
  10. NEUPRO [Concomitant]
     Dosage: 9 MG
     Dates: end: 20130605
  11. MEMARY [Concomitant]
     Indication: DEMENTIA ALZHEIMER^S TYPE
     Dosage: 10 MG
     Dates: end: 20130311
  12. ARICEPT [Concomitant]
     Indication: DEMENTIA ALZHEIMER^S TYPE
     Dosage: 5 MG
     Route: 048
     Dates: end: 20130311
  13. NEODOPASTON [Concomitant]
     Indication: PARKINSON^S DISEASE
     Dosage: 300 MG
     Route: 048
     Dates: end: 20130429
  14. VEEN-F [Concomitant]
     Indication: EATING DISORDER
     Dosage: 500 ML, UNK

REACTIONS (10)
  - Multi-organ failure [Fatal]
  - Disseminated intravascular coagulation [Fatal]
  - Aphagia [Not Recovered/Not Resolved]
  - Dysphagia [Unknown]
  - Malnutrition [Unknown]
  - General physical health deterioration [Unknown]
  - Dementia [Unknown]
  - Blepharitis [Recovering/Resolving]
  - Diarrhoea [Not Recovered/Not Resolved]
  - Proctitis infectious [Not Recovered/Not Resolved]
